FAERS Safety Report 17230663 (Version 2)
Quarter: 2020Q1

REPORT INFORMATION
  Report Type: Spontaneous
  Country: JP (occurrence: JP)
  Receive Date: 20200103
  Receipt Date: 20200121
  Transmission Date: 20200409
  Serious: Yes (Other)
  Sender: FDA-Public Use
  Company Number: NVSC2019JP084644

PATIENT
  Age: 81 Year
  Sex: Male

DRUGS (2)
  1. TRIAMCINOLONE [Suspect]
     Active Substance: TRIAMCINOLONE
     Indication: PLANTAR FASCIITIS
     Dosage: UNK
     Route: 065
  2. LIDOCAINE. [Suspect]
     Active Substance: LIDOCAINE
     Indication: PLANTAR FASCIITIS
     Dosage: UNK
     Route: 065

REACTIONS (7)
  - Urticaria [Unknown]
  - Dyspnoea [Unknown]
  - Anaphylactic reaction [Recovered/Resolved]
  - Pruritus [Unknown]
  - Rash [Unknown]
  - Product use in unapproved indication [Unknown]
  - Loss of consciousness [Unknown]
